FAERS Safety Report 8222021-3 (Version None)
Quarter: 2012Q1

REPORT INFORMATION
  Report Type: 
  Country: None (occurrence: None)
  Receive Date: 20120320
  Receipt Date: 20120312
  Transmission Date: 20120608
  Serious: Yes (Disabling)
  Sender: FDA-Public Use
  Company Number: IE-US-EMD SERONO, INC.-7118817

PATIENT
  Sex: Female

DRUGS (1)
  1. REBIF [Suspect]
     Indication: MULTIPLE SCLEROSIS
     Route: 058
     Dates: start: 19991114

REACTIONS (7)
  - MULTIPLE SCLEROSIS RELAPSE [None]
  - DYSMENORRHOEA [None]
  - COGNITIVE DISORDER [None]
  - SINUSITIS [None]
  - ATAXIA [None]
  - GOUT [None]
  - MOBILITY DECREASED [None]
